FAERS Safety Report 25243757 (Version 1)
Quarter: 2025Q2

REPORT INFORMATION
  Report Type: Spontaneous
  Country: ES (occurrence: ES)
  Receive Date: 20250428
  Receipt Date: 20250428
  Transmission Date: 20250716
  Serious: Yes (Death, Other)
  Sender: SANOFI AVENTIS
  Company Number: ES-SA-2025SA087800

PATIENT
  Age: 68 Year
  Sex: Male

DRUGS (13)
  1. FABRAZYME [Suspect]
     Active Substance: AGALSIDASE BETA
     Indication: Fabry^s disease
     Dosage: 70 MG, QOW
     Route: 042
     Dates: start: 20111227, end: 20250301
  2. REPLAGAL [Suspect]
     Active Substance: AGALSIDASE ALFA
     Indication: Fabry^s disease
     Route: 065
  3. ACETYLCYSTEINE [Concomitant]
     Active Substance: ACETYLCYSTEINE
  4. TRELEGY ELLIPTA [Concomitant]
     Active Substance: FLUTICASONE FUROATE\UMECLIDINIUM BROMIDE\VILANTEROL TRIFENATATE
  5. TAMSULOSIN [Concomitant]
     Active Substance: TAMSULOSIN
  6. SIMVASTATIN [Concomitant]
     Active Substance: SIMVASTATIN
  7. PROGRAF [Concomitant]
     Active Substance: TACROLIMUS
  8. PREDNISONE [Concomitant]
     Active Substance: PREDNISONE
  9. PANTOPRAZOLE [Concomitant]
     Active Substance: PANTOPRAZOLE
  10. LEVETIRACETAM [Concomitant]
     Active Substance: LEVETIRACETAM
  11. BISOPROLOL [Concomitant]
     Active Substance: BISOPROLOL
  12. DAPAGLIFLOZIN [Concomitant]
     Active Substance: DAPAGLIFLOZIN
  13. CETIRIZINE [Concomitant]
     Active Substance: CETIRIZINE HYDROCHLORIDE

REACTIONS (7)
  - Death [Fatal]
  - Hypertrophic cardiomyopathy [Unknown]
  - Transient ischaemic attack [Unknown]
  - Mitral valve incompetence [Unknown]
  - Embolic stroke [Unknown]
  - Renal transplant [Unknown]
  - Atrioventricular block second degree [Unknown]

NARRATIVE: CASE EVENT DATE: 20240324
